FAERS Safety Report 4477440-8 (Version None)
Quarter: 2004Q4

REPORT INFORMATION
  Report Type: 
  Country: None (occurrence: None)
  Receive Date: 20041005
  Receipt Date: 20040916
  Transmission Date: 20050328
  Serious: Yes (Death, Life-Threatening, Hospitalization, Disabling, Other)
  Sender: FDA-Public Use
  Company Number: 239325

PATIENT
  Age: 2 Year
  Sex: Male
  Weight: 13.4 kg

DRUGS (11)
  1. NOVOSEVEN [Suspect]
     Indication: ILL-DEFINED DISORDER
     Dates: start: 20030430, end: 20030506
  2. VITAMIN K (PHYTOMEMANDIONE) [Concomitant]
  3. FUROSEMIDE [Concomitant]
  4. VINCRISTINE [Concomitant]
  5. KETAMINE HCL [Concomitant]
  6. FENTANYL [Concomitant]
  7. PARACETAMOL [Concomitant]
  8. ORAMORPH SR [Concomitant]
  9. ALLOPURINOL [Concomitant]
  10. VECURONIUM BROMIDE [Concomitant]
  11. POTASSIUM IODATE [Concomitant]

REACTIONS (14)
  - CARDIAC DISORDER [None]
  - HEART INJURY [None]
  - HEPATOCELLULAR DAMAGE [None]
  - ILIAC VEIN THROMBOSIS [None]
  - INFARCTION [None]
  - LUNG DISORDER [None]
  - NEUROBLASTOMA [None]
  - PULMONARY EMBOLISM [None]
  - PULMONARY INFARCTION [None]
  - RENAL CORTICAL NECROSIS [None]
  - RENAL INFARCT [None]
  - RENAL TUBULAR NECROSIS [None]
  - TUMOUR LYSIS SYNDROME [None]
  - VENA CAVA THROMBOSIS [None]
